FAERS Safety Report 17020491 (Version 1)
Quarter: 2019Q4

REPORT INFORMATION
  Report Type: Spontaneous
  Country: US (occurrence: US)
  Receive Date: 20191007
  Receipt Date: 20191007
  Transmission Date: 20200122
  Serious: No
  Sender: FDA-Public Use
  Company Number: None

PATIENT
  Age: 9 Year
  Sex: Male

DRUGS (1)
  1. HUMIRA [Suspect]
     Active Substance: ADALIMUMAB
     Indication: JUVENILE IDIOPATHIC ARTHRITIS
     Route: 058
     Dates: start: 20190518

REACTIONS (4)
  - Pain in extremity [None]
  - Decreased appetite [None]
  - Increased tendency to bruise [None]
  - Fatigue [None]

NARRATIVE: CASE EVENT DATE: 20190930
